FAERS Safety Report 13425498 (Version 2)
Quarter: 2017Q2

REPORT INFORMATION
  Report Type: Spontaneous
  Country: US (occurrence: US)
  Receive Date: 20170411
  Receipt Date: 20170411
  Transmission Date: 20170830
  Serious: No
  Sender: FDA-Public Use
  Company Number: PHEH2017US010112

PATIENT

DRUGS (6)
  1. PREDNISONE. [Suspect]
     Active Substance: PREDNISONE
     Indication: FOETAL EXPOSURE DURING PREGNANCY
     Dosage: MOTHER DOSE: 60 MG, QD
     Route: 064
     Dates: start: 20161109, end: 20161122
  2. GADOLINIUM [Suspect]
     Active Substance: GADOLINIUM
     Indication: FOETAL EXPOSURE DURING PREGNANCY
     Dosage: MATERNAL DOSE (UNKNOWN)
     Route: 064
     Dates: start: 20161109, end: 20161109
  3. PREDNISONE. [Suspect]
     Active Substance: PREDNISONE
     Dosage: MOTHER DOSE: 10 MG, QD
     Route: 064
     Dates: start: 20161109, end: 20161122
  4. PREDNISONE. [Suspect]
     Active Substance: PREDNISONE
     Dosage: MOTHER DOSE: 20 MG, QD
     Route: 064
     Dates: start: 20161109, end: 20161122
  5. GILENYA [Suspect]
     Active Substance: FINGOLIMOD HYDROCHLORIDE
     Indication: FOETAL EXPOSURE DURING PREGNANCY
     Dosage: MATERNAL DOSE (UNKNOWN)
     Route: 064
     Dates: start: 2013, end: 201506
  6. PREDNISONE. [Suspect]
     Active Substance: PREDNISONE
     Dosage: MOTHER DOSE: 40 MG, QD
     Route: 064
     Dates: start: 20161109, end: 20161122

REACTIONS (1)
  - Foetal exposure during pregnancy [Unknown]
